FAERS Safety Report 7425977-1 (Version None)
Quarter: 2011Q2

REPORT INFORMATION
  Report Type: 
  Country: None (occurrence: None)
  Receive Date: 20110420
  Receipt Date: 20110411
  Transmission Date: 20111010
  Serious: Yes (Death, Hospitalization, Other)
  Sender: FDA-Public Use
  Company Number: JP-AMGEN-KDC441736

PATIENT
  Age: 63 Year
  Sex: Male
  Weight: 68 kg

DRUGS (22)
  1. IRINOTECAN HCL [Suspect]
     Indication: COLORECTAL CANCER
     Route: 041
     Dates: start: 20100701, end: 20100715
  2. MARZULENE S [Concomitant]
     Route: 048
  3. CALCIUM LEVOFOLINATE [Suspect]
     Indication: COLORECTAL CANCER
     Route: 041
     Dates: start: 20100701, end: 20100715
  4. DIOVAN [Concomitant]
     Route: 048
  5. NORVASC [Concomitant]
     Route: 048
  6. ANTIHISTAMINES [Concomitant]
     Indication: PROPHYLAXIS
     Route: 065
  7. DIOVAN [Concomitant]
     Indication: HYPERTENSION
     Route: 048
  8. DIOVAN [Concomitant]
  9. SIGMART [Concomitant]
     Route: 048
  10. SIGMART [Concomitant]
     Indication: ANGINA PECTORIS
     Route: 048
  11. NAIXAN [Concomitant]
     Route: 048
  12. LEUCON [Concomitant]
     Indication: NEUTROPHIL COUNT DECREASED
     Route: 048
     Dates: end: 20100715
  13. PANITUMUMAB [Suspect]
     Indication: COLORECTAL CANCER
     Dosage: 6 MG/KG, Q2WK
     Route: 041
     Dates: start: 20100701, end: 20101202
  14. FLUOROURACIL [Suspect]
     Indication: COLORECTAL CANCER
     Route: 040
     Dates: start: 20100701, end: 20100715
  15. FLUOROURACIL [Suspect]
     Route: 041
     Dates: start: 20100701, end: 20100715
  16. CALCIUM CHANNEL BLOCKERS [Concomitant]
     Dosage: UNK UNK, UNK
     Route: 065
  17. CORTICOSTEROIDS [Concomitant]
     Indication: PROPHYLAXIS
     Route: 065
  18. NORVASC [Concomitant]
     Indication: HYPERTENSION
     Route: 048
  19. BUFFERIN [Concomitant]
     Route: 048
  20. NAIXAN [Concomitant]
     Indication: CANCER PAIN
     Route: 048
  21. BUFFERIN A [Concomitant]
     Indication: ANGINA PECTORIS
     Route: 048
  22. MARZULENE S [Concomitant]
     Indication: GASTRITIS
     Route: 048

REACTIONS (8)
  - PARONYCHIA [None]
  - COLORECTAL CANCER [None]
  - ANGINA UNSTABLE [None]
  - DRY SKIN [None]
  - MYOCARDIAL INFARCTION [None]
  - DERMATITIS ACNEIFORM [None]
  - STOMATITIS [None]
  - BONE MARROW FAILURE [None]
